FAERS Safety Report 6337485-X (Version None)
Quarter: 2009Q3

REPORT INFORMATION
  Report Type: 
  Country: None (occurrence: None)
  Receive Date: 20090902
  Receipt Date: 20090828
  Transmission Date: 20100115
  Serious: Yes (Other)
  Sender: FDA-Public Use
  Company Number: DK-TEVA-207532ISR

PATIENT
  Sex: Female

DRUGS (5)
  1. SIMVASTATIN [Suspect]
     Indication: BLOOD CHOLESTEROL
     Route: 048
     Dates: start: 20090401
  2. LEVETIRACETAM [Concomitant]
     Indication: OLIGURIA
  3. HJERTEMAGNYL [Concomitant]
  4. METOPROLOL SUCCINATE [Concomitant]
  5. CLOBAZAM [Concomitant]

REACTIONS (4)
  - EYE DISORDER [None]
  - MACULAR DEGENERATION [None]
  - VISION BLURRED [None]
  - VISUAL ACUITY REDUCED [None]
